FAERS Safety Report 10136316 (Version 1)
Quarter: 2014Q2

REPORT INFORMATION
  Report Type: Spontaneous
  Country: US (occurrence: None)
  Receive Date: 20140428
  Receipt Date: 20140428
  Transmission Date: 20141212
  Serious: Yes (Hospitalization)
  Sender: FDA-Public Use
  Company Number: None

PATIENT
  Age: 68 Year
  Sex: Male
  Weight: 92 kg

DRUGS (1)
  1. CARBOPLATIN [Suspect]
     Dosage: TREATMENT WAS DELAYED 2 WEEKS DUE TO GRADE 2 THROMBOCYTOPENIA.  PTTS WERE 163,000 ON 3/31/14 AND PT RECEIVED CYCLE 2 DOSE.?
     Dates: end: 20140331

REACTIONS (5)
  - Unresponsive to stimuli [None]
  - Blood pressure decreased [None]
  - Anaemia [None]
  - Rectal haemorrhage [None]
  - Cardiopulmonary failure [None]
